FAERS Safety Report 23702850 (Version 1)
Quarter: 2024Q2

REPORT INFORMATION
  Report Type: Spontaneous
  Country: US (occurrence: None)
  Receive Date: 20240403
  Receipt Date: 20240403
  Transmission Date: 20240715
  Serious: Yes (Life-Threatening, Hospitalization)
  Sender: FDA-Public Use
  Company Number: None

PATIENT
  Age: 64 Year
  Sex: Female
  Weight: 115 kg

DRUGS (19)
  1. OZEMPIC [Suspect]
     Active Substance: SEMAGLUTIDE
     Indication: Type 2 diabetes mellitus
     Dosage: OTHER FREQUENCY : WEEKLY;?
     Route: 058
     Dates: start: 20240313, end: 20240401
  2. OZEMPIC [Suspect]
     Active Substance: SEMAGLUTIDE
     Indication: Obesity
  3. albuterol (Proventil HFA) [Concomitant]
  4. apoaequorin (Prevagen) [Concomitant]
  5. BENAZEPRIL [Concomitant]
     Active Substance: BENAZEPRIL HYDROCHLORIDE
  6. BUSPIRONE [Concomitant]
     Active Substance: BUSPIRONE HYDROCHLORIDE
  7. CYANOCOBALAMIN [Concomitant]
     Active Substance: CYANOCOBALAMIN
  8. fluticasone-umeclidin-vilanterol (Trelegy Ellipta) [Concomitant]
  9. insulin glargine (Lantus Solostar) [Concomitant]
  10. insulin lispro (Humalog Kwikpen) [Concomitant]
  11. LEVOTHYROXINE [Concomitant]
     Active Substance: LEVOTHYROXINE\LEVOTHYROXINE SODIUM
  12. LOVASTATIN [Concomitant]
     Active Substance: LOVASTATIN
  13. MELOXICAM [Concomitant]
     Active Substance: MELOXICAM
  14. VITAMINS [Concomitant]
     Active Substance: VITAMINS
  15. PRAMIPEXOLE [Concomitant]
     Active Substance: PRAMIPEXOLE\PRAMIPEXOLE DIHYDROCHLORIDE
  16. SUMATRIPTAN [Concomitant]
     Active Substance: SUMATRIPTAN
  17. tizanodone [Concomitant]
  18. TRAZODONE [Concomitant]
     Active Substance: TRAZODONE HYDROCHLORIDE
  19. VENLAFAXINE [Concomitant]
     Active Substance: VENLAFAXINE HYDROCHLORIDE

REACTIONS (8)
  - Diarrhoea [None]
  - Gastrointestinal haemorrhage [None]
  - Urticaria [None]
  - Angioedema [None]
  - Respiratory distress [None]
  - Vomiting [None]
  - Presyncope [None]
  - Hypotension [None]

NARRATIVE: CASE EVENT DATE: 20240401
